FAERS Safety Report 4817042-4 (Version None)
Quarter: 2005Q4

REPORT INFORMATION
  Report Type: 
  Country: None (occurrence: None)
  Receive Date: 20051101
  Receipt Date: 20051026
  Transmission Date: 20060501
  Serious: Yes (Other)
  Sender: FDA-Public Use
  Company Number: JP-JPN-A20052594

PATIENT
  Age: 73 Year
  Sex: Female

DRUGS (2)
  1. PAXIL [Suspect]
     Indication: PSYCHIATRIC SYMPTOM
     Dosage: 10MG PER DAY
     Route: 048
     Dates: start: 20051013, end: 20051016
  2. PRAMIPEXOLE HYDROCHLORIDE HYDRATE [Concomitant]
     Route: 048

REACTIONS (1)
  - NEUROLEPTIC MALIGNANT SYNDROME [None]
